FAERS Safety Report 9058652 (Version 1)
Quarter: 2013Q1

REPORT INFORMATION
  Report Type: Spontaneous
  Country: US (occurrence: US)
  Receive Date: 20130204
  Receipt Date: 20130204
  Transmission Date: 20140127
  Serious: No
  Sender: FDA-Public Use
  Company Number: US-GLAXOSMITHKLINE-A0997164A

PATIENT
  Sex: Female

DRUGS (2)
  1. HORIZANT [Suspect]
     Indication: RESTLESS LEGS SYNDROME
     Dosage: 600MG UNKNOWN
     Route: 065
  2. MIRAPEX [Concomitant]

REACTIONS (3)
  - Restless legs syndrome [Unknown]
  - Feeling abnormal [Unknown]
  - Drug ineffective [Unknown]
